FAERS Safety Report 4621551-0 (Version None)
Quarter: 2005Q1

REPORT INFORMATION
  Report Type: 
  Country: None (occurrence: None)
  Receive Date: 20050328
  Receipt Date: 20030829
  Transmission Date: 20050727
  Serious: Yes (Death)
  Sender: FDA-Public Use
  Company Number: 5904

PATIENT
  Age: 52 Year

DRUGS (3)
  1. FLUOROURACIL [Suspect]
     Indication: PANCREATIC CARCINOMA
     Dosage: 200 MG/M2; IV
     Route: 042
  2. GEMCITABINE [Suspect]
     Indication: PANCREATIC CARCINOMA
     Dosage: 1000 MG/M2; IV
     Route: 042
  3. MORPHINE [Suspect]
     Indication: ANALGESIC THERAPY
     Dosage: 20 MG BID;

REACTIONS (9)
  - ABDOMINAL PAIN UPPER [None]
  - AGGRESSION [None]
  - AMNESIA [None]
  - ANXIETY [None]
  - COMA [None]
  - DEHYDRATION [None]
  - METABOLIC ENCEPHALOPATHY [None]
  - OCULAR ICTERUS [None]
  - THERAPY NON-RESPONDER [None]
